FAERS Safety Report 13579476 (Version 9)
Quarter: 2018Q2

REPORT INFORMATION
  Report Type: Report from Study
  Country: MX (occurrence: MX)
  Receive Date: 20170525
  Receipt Date: 20180516
  Transmission Date: 20180711
  Serious: Yes (Hospitalization, Disabling)
  Sender: FDA-Public Use
  Company Number: MX-ROCHE-1919683

PATIENT
  Age: 48 Year
  Sex: Female

DRUGS (54)
  1. DEXAMETASONA [Concomitant]
     Active Substance: DEXAMETHASONE
     Route: 065
     Dates: start: 20140129, end: 20140129
  2. ONDANSETRON [Concomitant]
     Active Substance: ONDANSETRON
     Route: 065
     Dates: start: 20140611, end: 20140611
  3. HEPARINA [Concomitant]
     Active Substance: HEPARIN SODIUM
     Dosage: 1000 U
     Route: 042
     Dates: start: 20131218, end: 20131218
  4. AMLODIPINE [Concomitant]
     Active Substance: AMLODIPINE BESYLATE
     Route: 065
     Dates: start: 20141014
  5. RANISEN [Concomitant]
     Indication: PREMEDICATION
     Route: 065
     Dates: start: 20131218, end: 20131218
  6. RANITIDINE. [Concomitant]
     Active Substance: RANITIDINE
     Route: 065
     Dates: start: 20140430, end: 20140430
  7. PACLITAXEL. [Suspect]
     Active Substance: PACLITAXEL
     Indication: HER-2 POSITIVE BREAST CANCER
     Dosage: DATE OF LAST DOSE PRIOR TO SAE: 23/SEP/2015
     Route: 042
     Dates: start: 20131218
  8. DEXAMETASONA [Concomitant]
     Active Substance: DEXAMETHASONE
     Route: 065
     Dates: start: 20140521, end: 20140521
  9. ONDANSETRON [Concomitant]
     Active Substance: ONDANSETRON
     Route: 065
     Dates: start: 20140219, end: 20140219
  10. CLORFENAMINA [Concomitant]
     Route: 065
     Dates: start: 20140108, end: 20140108
  11. CLORFENAMINA [Concomitant]
     Route: 065
     Dates: start: 20140521, end: 20140521
  12. RANITIDINE. [Concomitant]
     Active Substance: RANITIDINE
     Route: 065
     Dates: start: 20140409, end: 20140409
  13. PERTUZUMAB. [Suspect]
     Active Substance: PERTUZUMAB
     Indication: HER-2 POSITIVE BREAST CANCER
     Dosage: LOADING DOSE?THERAPY DICONTINUED ON 09/APR/2017?DATE OF LAST DOSE PRIOR TO SAE:  28/MAR/2017
     Route: 042
     Dates: start: 20131218, end: 20170409
  14. DEXAMETASONA [Concomitant]
     Active Substance: DEXAMETHASONE
     Route: 065
     Dates: start: 20140312, end: 20140312
  15. ONDANSETRON [Concomitant]
     Active Substance: ONDANSETRON
     Route: 065
     Dates: start: 20131218, end: 20131218
  16. CLORFENAMINA [Concomitant]
     Route: 065
     Dates: start: 20140129, end: 20140129
  17. OMEPRAZOL [Concomitant]
     Active Substance: OMEPRAZOLE
     Route: 065
     Dates: start: 20131220
  18. PREGABALINA [Concomitant]
     Active Substance: PREGABALIN
     Route: 065
     Dates: start: 201312, end: 20140106
  19. HEPARINA [Concomitant]
     Active Substance: HEPARIN SODIUM
     Dosage: 1000 U
     Route: 042
     Dates: start: 20140108, end: 20140108
  20. RANISEN [Concomitant]
     Route: 065
     Dates: start: 20140108, end: 20140108
  21. RANITIDINE. [Concomitant]
     Active Substance: RANITIDINE
     Route: 065
     Dates: start: 20140702, end: 20140702
  22. ONDANSETRON [Concomitant]
     Active Substance: ONDANSETRON
     Route: 065
     Dates: start: 20140430, end: 20140430
  23. ONDANSETRON [Concomitant]
     Active Substance: ONDANSETRON
     Route: 065
     Dates: start: 20140521, end: 20140521
  24. TRASTUZUMAB. [Suspect]
     Active Substance: TRASTUZUMAB
     Indication: HER-2 POSITIVE BREAST CANCER
     Dosage: LOADING DOSE?THERAPY DICONTINUED ON 09/APR/2017?DATE OF LAST DOSE PRIOR TO SAE: 28/MAR/2017
     Route: 042
     Dates: start: 20131218, end: 20170409
  25. DEXAMETASONA [Concomitant]
     Active Substance: DEXAMETHASONE
     Route: 065
     Dates: start: 20140219, end: 20140219
  26. DEXAMETASONA [Concomitant]
     Active Substance: DEXAMETHASONE
     Route: 065
     Dates: start: 20140409, end: 20140409
  27. ONDANSETRON [Concomitant]
     Active Substance: ONDANSETRON
     Route: 065
     Dates: start: 20140129, end: 20140129
  28. ONDANSETRON [Concomitant]
     Active Substance: ONDANSETRON
     Route: 065
     Dates: start: 20140409, end: 20140409
  29. CLORFENAMINA [Concomitant]
     Route: 065
     Dates: start: 20140219, end: 20140219
  30. DULOXETINA [Concomitant]
     Active Substance: DULOXETINE
     Route: 065
     Dates: start: 20140106
  31. HEPARINA [Concomitant]
     Active Substance: HEPARIN SODIUM
     Dosage: 1000 U
     Route: 042
     Dates: start: 20140129, end: 20140129
  32. RANITIDINE. [Concomitant]
     Active Substance: RANITIDINE
     Route: 065
     Dates: start: 20140219, end: 20140219
  33. RANITIDINE. [Concomitant]
     Active Substance: RANITIDINE
     Route: 065
     Dates: start: 20140521, end: 20140521
  34. RANITIDINE. [Concomitant]
     Active Substance: RANITIDINE
     Route: 065
     Dates: start: 20140611, end: 20140611
  35. ONDANSETRON [Concomitant]
     Active Substance: ONDANSETRON
     Route: 065
     Dates: start: 20140702, end: 20140702
  36. CLORFENAMINA [Concomitant]
     Route: 065
     Dates: start: 20140312, end: 20140312
  37. CLORFENAMINA [Concomitant]
     Route: 065
     Dates: start: 20140430, end: 20140430
  38. RANITIDINE. [Concomitant]
     Active Substance: RANITIDINE
     Route: 065
     Dates: start: 20140129, end: 20140129
  39. DEXAMETASONA [Concomitant]
     Active Substance: DEXAMETHASONE
     Route: 065
     Dates: start: 20131218, end: 20131218
  40. DEXAMETASONA [Concomitant]
     Active Substance: DEXAMETHASONE
     Route: 065
     Dates: start: 20140611, end: 20140611
  41. ONDANSETRON [Concomitant]
     Active Substance: ONDANSETRON
     Route: 065
     Dates: start: 20140108, end: 20140108
  42. ONDANSETRON [Concomitant]
     Active Substance: ONDANSETRON
     Route: 065
     Dates: start: 20140312, end: 20140312
  43. CLORFENAMINA [Concomitant]
     Route: 065
     Dates: start: 20140409, end: 20140409
  44. CLORFENAMINA [Concomitant]
     Route: 065
     Dates: start: 20140702, end: 20140702
  45. HEPARINA [Concomitant]
     Active Substance: HEPARIN SODIUM
     Dosage: 1000 U
     Route: 042
     Dates: start: 20140219, end: 20140219
  46. SUPRADOL [Concomitant]
     Route: 065
     Dates: start: 20140110, end: 20140112
  47. RANITIDINE. [Concomitant]
     Active Substance: RANITIDINE
     Route: 065
     Dates: start: 20140312, end: 20140312
  48. DEXAMETASONA [Concomitant]
     Active Substance: DEXAMETHASONE
     Route: 065
     Dates: start: 20140108, end: 20140108
  49. DEXAMETASONA [Concomitant]
     Active Substance: DEXAMETHASONE
     Route: 065
     Dates: start: 20140430, end: 20140430
  50. DEXAMETASONA [Concomitant]
     Active Substance: DEXAMETHASONE
     Route: 065
     Dates: start: 20140702, end: 20140702
  51. CLORFENAMINA [Concomitant]
     Route: 065
     Dates: start: 20131218, end: 20131218
  52. CLORFENAMINA [Concomitant]
     Route: 065
     Dates: start: 20140611, end: 20140611
  53. ENALAPRIL [Concomitant]
     Active Substance: ENALAPRIL
     Route: 065
     Dates: start: 20140401
  54. LETROZOL [Concomitant]
     Active Substance: LETROZOLE
     Route: 065
     Dates: start: 20151202

REACTIONS (1)
  - Femur fracture [Recovered/Resolved with Sequelae]

NARRATIVE: CASE EVENT DATE: 20170409
